FAERS Safety Report 22267249 (Version 1)
Quarter: 2023Q2

REPORT INFORMATION
  Report Type: Report from Study
  Country: US (occurrence: US)
  Receive Date: 20230428
  Receipt Date: 20230428
  Transmission Date: 20230722
  Serious: Yes (Hospitalization)
  Sender: FDA-Public Use
  Company Number: US-BAUSCH-BL-2023-004681

PATIENT
  Age: 81 Year
  Sex: Male

DRUGS (10)
  1. XIFAXAN [Suspect]
     Active Substance: RIFAXIMIN
     Indication: Product used for unknown indication
     Route: 065
     Dates: start: 202303, end: 202303
  2. VITAMIN B12 [Concomitant]
     Active Substance: CYANOCOBALAMIN
     Indication: Product used for unknown indication
  3. FENOFIBRATE [Concomitant]
     Active Substance: FENOFIBRATE
     Indication: Product used for unknown indication
     Dosage: 1 TABLET BY MOUTH DAILY
     Route: 048
  4. FUROSEMIDE [Concomitant]
     Active Substance: FUROSEMIDE
     Indication: Joint swelling
     Dosage: 1 TABLET DAILY AS NEEDED
  5. MIDODRINE [Concomitant]
     Active Substance: MIDODRINE
     Indication: Product used for unknown indication
     Dosage: 1 TABLET TWICE A DAY
     Route: 048
  6. TAMSULOSIN [Concomitant]
     Active Substance: TAMSULOSIN
     Indication: Product used for unknown indication
     Dosage: 1 CAPSULE BY MOUTH DAILY
     Route: 048
  7. ZYRTEC [Concomitant]
     Active Substance: CETIRIZINE HYDROCHLORIDE
     Indication: Product used for unknown indication
  8. VITAMIN C [Concomitant]
     Active Substance: ASCORBIC ACID
     Indication: Product used for unknown indication
  9. LACTULOSE [Concomitant]
     Active Substance: LACTULOSE
     Indication: Product used for unknown indication
  10. SPIRIVA [Concomitant]
     Active Substance: TIOTROPIUM BROMIDE MONOHYDRATE
     Indication: Product used for unknown indication
     Dosage: INHALE THE CONTENT OF 1 CAPSULE BY MOUTH VIA HANDIHALER DAILY AS DIRECTED
     Route: 048

REACTIONS (6)
  - Hepatic encephalopathy [Recovering/Resolving]
  - Symptom recurrence [Recovering/Resolving]
  - Pneumonia [Unknown]
  - Hypomagnesaemia [Unknown]
  - Inability to afford medication [Unknown]
  - Product use issue [Unknown]

NARRATIVE: CASE EVENT DATE: 20230301
